FAERS Safety Report 6062620-0 (Version None)
Quarter: 2009Q1

REPORT INFORMATION
  Report Type: 
  Country: None (occurrence: None)
  Receive Date: 20090130
  Receipt Date: 20090130
  Transmission Date: 20090719
  Serious: Yes (Death)
  Sender: FDA-Public Use
  Company Number: None

PATIENT
  Age: 46 Year
  Sex: Male
  Weight: 92.9874 kg

DRUGS (1)
  1. RAPTIVA [Suspect]

REACTIONS (2)
  - PNEUMONIA [None]
  - SEPSIS [None]
